FAERS Safety Report 21805863 (Version 1)
Quarter: 2023Q1

REPORT INFORMATION
  Report Type: Spontaneous
  Country: FR (occurrence: FR)
  Receive Date: 20230102
  Receipt Date: 20230102
  Transmission Date: 20230418
  Serious: Yes (Hospitalization, Other)
  Sender: FDA-Public Use
  Company Number: FR-AFSSAPS-GR20222656

PATIENT
  Age: 88 Year
  Sex: Male

DRUGS (3)
  1. LOVENOX [Interacting]
     Active Substance: ENOXAPARIN SODIUM
     Dosage: 6000 IU
     Route: 058
     Dates: start: 20221117
  2. APIXABAN [Interacting]
     Active Substance: APIXABAN
     Indication: Atrial fibrillation
     Dosage: 2.5 MG, BID
     Route: 048
     Dates: end: 20221116
  3. PAXLOVID [Interacting]
     Active Substance: NIRMATRELVIR\RITONAVIR
     Indication: COVID-19 treatment
     Dosage: NP
     Route: 048
     Dates: start: 20221117, end: 20221122

REACTIONS (4)
  - Drug interaction [Recovering/Resolving]
  - Drug interaction [Recovering/Resolving]
  - Blood loss anaemia [Recovering/Resolving]
  - Haematoma muscle [Recovering/Resolving]

NARRATIVE: CASE EVENT DATE: 20221123
